FAERS Safety Report 17638279 (Version 4)
Quarter: 2020Q3

REPORT INFORMATION
  Report Type: Report from Study
  Country: GB (occurrence: GB)
  Receive Date: 20200407
  Receipt Date: 20200814
  Transmission Date: 20201102
  Serious: Yes (Hospitalization)
  Sender: FDA-Public Use
  Company Number: GB-ASPEN-GLO2020GB003586

PATIENT
  Age: 78 Year
  Sex: Male
  Weight: 78.6 kg

DRUGS (22)
  1. DEXAMETHASONE. [Suspect]
     Active Substance: DEXAMETHASONE
     Dosage: 8 MG
     Route: 048
     Dates: start: 20191213, end: 20200229
  2. DEXAMETHASONE. [Suspect]
     Active Substance: DEXAMETHASONE
     Dosage: 20 MG: CYCLE 1?8: ON DAYS 1,2,4,5,8,9,11,12 OF 21
     Route: 048
     Dates: start: 20170428, end: 20190119
  3. BORTEZOMIB. [Suspect]
     Active Substance: BORTEZOMIB
     Dosage: 2 MG/M2: C9+: DAYS 1,8,15 AND 22 OF 35 DAY CYCLE
     Route: 058
     Dates: start: 20170821, end: 20200131
  4. DEXAMETHASONE. [Suspect]
     Active Substance: DEXAMETHASONE
     Indication: PLASMA CELL MYELOMA
     Dosage: 12 MG CYCLE 9+: ON DAYS 1,2,8,9,15,16,22,23 OF 35 DAY CYCLE
     Route: 048
     Dates: start: 20190222, end: 20191130
  5. DEXAMETHASONE. [Suspect]
     Active Substance: DEXAMETHASONE
     Dosage: C9+, DAY 1, 2, 8, 9, 15, 16, 22 AND 23 OF 35D CYCLE (8MG)
     Route: 048
  6. BORTEZOMIB. [Suspect]
     Active Substance: BORTEZOMIB
     Indication: PLASMA CELL MYELOMA
     Dosage: 2.5 MG/M2 CYCLE 1?8: ON DAYS 1,4,8,11 OF 21 DAY CYCLE
     Route: 058
     Dates: start: 20170428, end: 20170814
  7. VENETOCLAX. [Suspect]
     Active Substance: VENETOCLAX
     Indication: PLASMA CELL MYELOMA
     Dosage: 600 MG
     Route: 048
     Dates: start: 20171012, end: 20200305
  8. COTRIMOXAZOLE [Concomitant]
     Active Substance: SULFAMETHOXAZOLE\TRIMETHOPRIM
     Dosage: 2880 MG WEEKLY (960MG, 3 IN 1 WK)
     Route: 048
     Dates: start: 20190329
  9. DOXYCYCLINE. [Concomitant]
     Active Substance: DOXYCYCLINE
     Indication: ANTIBIOTIC PROPHYLAXIS
     Dosage: 400 MG, QD
     Route: 048
     Dates: start: 20190329
  10. ACICLOVIR [Concomitant]
     Active Substance: ACYCLOVIR
     Indication: PROPHYLAXIS
     Dosage: 600 MG (200MG, 3 IN 1 D)
     Route: 048
     Dates: start: 20170428
  11. SODIUM BICARBONATE. [Concomitant]
     Active Substance: SODIUM BICARBONATE
     Indication: SCLERAL DISORDER
     Route: 065
  12. ALLOPURINOL. [Concomitant]
     Active Substance: ALLOPURINOL
     Indication: TUMOUR LYSIS SYNDROME
     Dosage: 300 MG, QD
     Route: 048
     Dates: start: 20170428, end: 20170518
  13. DOXYCYCLINE. [Concomitant]
     Active Substance: DOXYCYCLINE
     Dosage: 200MG (100MG, 2 IN 1 D)
     Route: 048
     Dates: start: 20190329
  14. VENETOCLAX. [Suspect]
     Active Substance: VENETOCLAX
     Dosage: 400 MG
     Route: 048
  15. SODIUM BICARBONATE. [Concomitant]
     Active Substance: SODIUM BICARBONATE
     Indication: LACRIMATION INCREASED
  16. LANSOPRAZOLE. [Concomitant]
     Active Substance: LANSOPRAZOLE
     Indication: GASTROOESOPHAGEAL REFLUX DISEASE
     Dosage: 30 MG, QD
     Route: 048
     Dates: start: 20171115
  17. BORTEZOMIB. [Suspect]
     Active Substance: BORTEZOMIB
     Dosage: 1.95 MG/M2
     Route: 058
     Dates: start: 20200207, end: 20200228
  18. VENETOCLAX. [Suspect]
     Active Substance: VENETOCLAX
     Dosage: 800 MG, CYCLE 1?8: 21 D?
     Route: 048
     Dates: start: 20170428, end: 20171011
  19. COTRIMOXAZOLE [Concomitant]
     Active Substance: SULFAMETHOXAZOLE\TRIMETHOPRIM
     Indication: ANTIBIOTIC PROPHYLAXIS
     Dosage: 2880 MG (960MG, 3 IN 1 WK)
     Route: 048
     Dates: start: 20170428, end: 20190328
  20. ZOMETA [Concomitant]
     Active Substance: ZOLEDRONIC ACID
     Indication: PLASMA CELL MYELOMA
     Dosage: 3 MG
     Route: 042
     Dates: start: 20170619
  21. ZOMETA [Concomitant]
     Active Substance: ZOLEDRONIC ACID
     Dosage: 3 MG
     Route: 042
  22. PNEUMOCOCCAL VACCINE POLYVALENT NOS [Concomitant]
     Active Substance: PNEUMOCOCCAL VACCINE POLYVALENT
     Indication: PROPHYLAXIS
     Route: 065

REACTIONS (2)
  - Influenza [Recovered/Resolved]
  - Influenza B virus test positive [Recovered/Resolved]

NARRATIVE: CASE EVENT DATE: 20200306
